FAERS Safety Report 13508274 (Version 2)
Quarter: 2018Q2

REPORT INFORMATION
  Report Type: Spontaneous
  Country: US (occurrence: US)
  Receive Date: 20170503
  Receipt Date: 20180503
  Transmission Date: 20180711
  Serious: No
  Sender: FDA-Public Use
  Company Number: US-ASTRAZENECA-2016SE85452

PATIENT
  Sex: Male
  Weight: 68 kg

DRUGS (7)
  1. GLIPIZIDE. [Concomitant]
     Active Substance: GLIPIZIDE
     Indication: DIABETES MELLITUS
  2. VALSARTAN. [Concomitant]
     Active Substance: VALSARTAN
     Indication: ANGIOPATHY
  3. BYDUREON [Suspect]
     Active Substance: EXENATIDE
     Indication: TYPE 2 DIABETES MELLITUS
     Route: 058
     Dates: start: 2012
  4. BYDUREON BCISE [Suspect]
     Active Substance: EXENATIDE
     Route: 065
  5. FARXIGA [Suspect]
     Active Substance: DAPAGLIFLOZIN PROPANEDIOL
     Indication: TYPE 2 DIABETES MELLITUS
     Route: 048
  6. FINASTERIDE. [Concomitant]
     Active Substance: FINASTERIDE
     Indication: PROSTATIC DISORDER
  7. ZETIA [Concomitant]
     Active Substance: EZETIMIBE
     Indication: BLOOD CHOLESTEROL ABNORMAL

REACTIONS (5)
  - Device malfunction [Unknown]
  - Injection site haemorrhage [Unknown]
  - Product storage error [Unknown]
  - Wrong technique in product usage process [Unknown]
  - Injection site nodule [Not Recovered/Not Resolved]
